FAERS Safety Report 8058109-X (Version None)
Quarter: 2012Q1

REPORT INFORMATION
  Report Type: 
  Country: None (occurrence: None)
  Receive Date: 20120118
  Receipt Date: 20120118
  Transmission Date: 20120608
  Serious: Yes (Life-Threatening)
  Sender: FDA-Public Use
  Company Number: None

PATIENT
  Age: 81 Year
  Sex: Female

DRUGS (2)
  1. LENALIDOMIDE [Suspect]
     Indication: ACUTE MYELOID LEUKAEMIA
     Dosage: 10 MG PO D1-28
     Route: 048
  2. AZACITIDINE [Suspect]
     Dosage: 75 MG/M2 IV D1-5
     Route: 042

REACTIONS (2)
  - HYPOKALAEMIA [None]
  - DIARRHOEA [None]
